FAERS Safety Report 6720004-3 (Version None)
Quarter: 2010Q2

REPORT INFORMATION
  Report Type: 
  Country: None (occurrence: None)
  Receive Date: 20100511
  Receipt Date: 20100426
  Transmission Date: 20101027
  Serious: Yes (Other)
  Sender: FDA-Public Use
  Company Number: US-SHIRE-SPV1-2010-00823

PATIENT

DRUGS (2)
  1. DAYTRANA [Suspect]
     Indication: ATTENTION DEFICIT/HYPERACTIVITY DISORDER
     Dosage: 15 MG, ONE DOSE
     Route: 062
     Dates: start: 20100301, end: 20100301
  2. SINGULAIR [Concomitant]
     Dosage: UNK, UNK
     Route: 048

REACTIONS (3)
  - DEPRESSED MOOD [None]
  - RESTLESSNESS [None]
  - SUICIDAL IDEATION [None]
